FAERS Safety Report 7770999-4 (Version None)
Quarter: 2011Q3

REPORT INFORMATION
  Report Type: 
  Country: None (occurrence: None)
  Receive Date: 20110922
  Receipt Date: 20100820
  Transmission Date: 20111222
  Serious: No
  Sender: FDA-Public Use
  Company Number: US-ASTRAZENECA-2010SE39349

PATIENT
  Age: 36 Year
  Sex: Male

DRUGS (2)
  1. SEROQUEL XR [Suspect]
     Indication: ANXIETY
     Route: 048
  2. SEROQUEL XR [Suspect]
     Indication: DEPRESSION
     Route: 048

REACTIONS (7)
  - ASTHENIA [None]
  - NAUSEA [None]
  - LETHARGY [None]
  - DIARRHOEA [None]
  - DRUG DOSE OMISSION [None]
  - INSOMNIA [None]
  - HEADACHE [None]
